FAERS Safety Report 18915543 (Version 4)
Quarter: 2021Q1

REPORT INFORMATION
  Report Type: Report from Study
  Country: FR (occurrence: FR)
  Receive Date: 20210219
  Receipt Date: 20210310
  Transmission Date: 20210420
  Serious: Yes (Hospitalization)
  Sender: FDA-Public Use
  Company Number: FR-JNJFOC-20201229432

PATIENT
  Age: 42 Year
  Sex: Female
  Weight: 95 kg

DRUGS (8)
  1. SPRAVATO [Suspect]
     Active Substance: ESKETAMINE
     Dates: start: 20201008, end: 20201008
  2. SPRAVATO [Suspect]
     Active Substance: ESKETAMINE
     Dates: start: 20210107, end: 20210107
  3. SPRAVATO [Suspect]
     Active Substance: ESKETAMINE
     Dates: start: 20201224, end: 20201224
  4. SPRAVATO [Suspect]
     Active Substance: ESKETAMINE
     Indication: DEPRESSION
     Dates: start: 20201006
  5. MIANSERINE [MIANSERIN] [Concomitant]
     Active Substance: MIANSERIN HYDROCHLORIDE
     Indication: DEPRESSION
     Route: 048
     Dates: start: 20200929
  6. SPRAVATO [Suspect]
     Active Substance: ESKETAMINE
     Dates: start: 20210202, end: 20210202
  7. SPRAVATO [Suspect]
     Active Substance: ESKETAMINE
     Dates: start: 20210121, end: 20210121
  8. SPRAVATO [Suspect]
     Active Substance: ESKETAMINE
     Dates: start: 20201103, end: 20201103

REACTIONS (6)
  - Suicidal ideation [Recovered/Resolved]
  - Off label use [Unknown]
  - Dissociative disorder [Recovered/Resolved]
  - Product use issue [Unknown]
  - Somnolence [Recovered/Resolved]
  - Drug ineffective [Recovered/Resolved]

NARRATIVE: CASE EVENT DATE: 20201006
